FAERS Safety Report 24080789 (Version 4)
Quarter: 2024Q3

REPORT INFORMATION
  Report Type: Spontaneous
  Country: AT (occurrence: AT)
  Receive Date: 20240711
  Receipt Date: 20240920
  Transmission Date: 20241017
  Serious: Yes (Other)
  Sender: MYLAN
  Company Number: AT-STADA-01262402

PATIENT
  Age: 60 Year
  Sex: Female
  Weight: 80 kg

DRUGS (14)
  1. LENALIDOMIDE [Suspect]
     Active Substance: LENALIDOMIDE
     Indication: Diffuse large B-cell lymphoma
     Dosage: 25 MILLIGRAM, FREQUENCY: QD
     Route: 048
     Dates: start: 20230201, end: 20230523
  2. LENALIDOMIDE [Suspect]
     Active Substance: LENALIDOMIDE
     Dosage: 10 MILLIGRAM
     Route: 065
  3. BENDAMUSTINE HYDROCHLORIDE [Suspect]
     Active Substance: BENDAMUSTINE HYDROCHLORIDE
     Indication: Diffuse large B-cell lymphoma
     Dosage: 185.23 MG (BINDING THERAPY)
     Route: 065
     Dates: start: 20231026, end: 20231027
  4. CYCLOPHOSPHAMIDE [Suspect]
     Active Substance: CYCLOPHOSPHAMIDE
     Indication: Diffuse large B-cell lymphoma
     Dosage: 1594.45 MILLIGRAM
     Route: 042
     Dates: start: 20230201, end: 20230517
  5. CYCLOPHOSPHAMIDE [Suspect]
     Active Substance: CYCLOPHOSPHAMIDE
     Dosage: 1599.48 MILLIGRAM, 1599.48 MILLIGRAM, DAY 2
     Route: 042
     Dates: start: 20230201
  6. PREDNISOLONE [Suspect]
     Active Substance: PREDNISOLONE
     Indication: Diffuse large B-cell lymphoma
     Dosage: 100 MILLIGRAM, DAY 1-5
     Route: 048
     Dates: start: 20230201, end: 20230517
  7. RITUXIMAB [Suspect]
     Active Substance: RITUXIMAB
     Indication: Follicular lymphoma
     Dosage: 779.74 MILLIGRAM, 779.74 MILLIGRAM, DAY 1
     Route: 042
     Dates: start: 20230201, end: 20230517
  8. RITUXIMAB [Suspect]
     Active Substance: RITUXIMAB
     Indication: Diffuse large B-cell lymphoma
     Dosage: 797.23 MILLIGRAM
     Route: 042
  9. DOXORUBICIN [Suspect]
     Active Substance: DOXORUBICIN
     Indication: Diffuse large B-cell lymphoma
     Dosage: UNK
     Route: 042
     Dates: start: 20230201, end: 20230517
  10. VINCRISTINE [Suspect]
     Active Substance: VINCRISTINE
     Indication: Diffuse large B-cell lymphoma
     Dosage: 2 MILLIGRAM, DAY 2 (LAST DOSE PRIOR TO THE EVENT WAS 2 MG, DAY 1)
     Route: 042
     Dates: start: 20230201
  11. VINCRISTINE [Suspect]
     Active Substance: VINCRISTINE
     Dosage: 2 MILLIGRAM, LAST DOSE PRIOR TO THE EVENT WAS 2 MG, DAY 1
     Route: 042
  12. POLATUZUMAB VEDOTIN [Suspect]
     Active Substance: POLATUZUMAB VEDOTIN
     Indication: Diffuse large B-cell lymphoma
     Dosage: 147.6 MILLIGRAM (BINDING THERAPY)
     Route: 065
     Dates: start: 20231026
  13. TAFASITAMAB [Concomitant]
     Active Substance: TAFASITAMAB
     Indication: Diffuse large B-cell lymphoma
     Dosage: 1008 MILLIGRAM, QW
     Route: 042
     Dates: start: 20230201, end: 20230517
  14. TAFASITAMAB [Concomitant]
     Active Substance: TAFASITAMAB
     Dosage: 1063 MILLIGRAM, QW
     Route: 042
     Dates: start: 20230531

REACTIONS (3)
  - Adenocarcinoma [Recovered/Resolved]
  - Lung adenocarcinoma stage I [Recovered/Resolved]
  - Disease progression [Unknown]

NARRATIVE: CASE EVENT DATE: 20231010
